FAERS Safety Report 8621829-X (Version None)
Quarter: 2012Q3

REPORT INFORMATION
  Report Type: 
  Country: None (occurrence: None)
  Receive Date: 20120821
  Receipt Date: 20120821
  Transmission Date: 20120928
  Serious: Yes (Other)
  Sender: FDA-Public Use
  Company Number: None

PATIENT
  Age: 10 Year
  Sex: Male
  Weight: 27.2 kg

DRUGS (1)
  1. ARGININE HYDROCHOLORIDE PFIZER [Suspect]
     Indication: BLOOD GROWTH HORMONE
     Dosage: 5 ML/KG IV OVER 45 MINUTES ONCE IV
     Route: 042
     Dates: start: 20110819, end: 20110819

REACTIONS (2)
  - HYPOTENSION [None]
  - HAEMATURIA [None]
